FAERS Safety Report 8389646-6 (Version None)
Quarter: 2012Q2

REPORT INFORMATION
  Report Type: 
  Country: None (occurrence: None)
  Receive Date: 20120528
  Receipt Date: 20120514
  Transmission Date: 20120825
  Serious: Yes (Other)
  Sender: FDA-Public Use
  Company Number: US-ROCHE-1019451

PATIENT
  Age: 70 Year
  Sex: Male
  Weight: 74.2 kg

DRUGS (1)
  1. AVASTIN [Suspect]
     Indication: GLIOBLASTOMA MULTIFORME
     Dosage: OVER 30-90 MIN ON DAY 1 AND 15
     Route: 042
     Dates: start: 20110823

REACTIONS (1)
  - OPTIC NERVE DISORDER [None]
